FAERS Safety Report 11615891 (Version 1)
Quarter: 2015Q4

REPORT INFORMATION
  Report Type: Spontaneous
  Country: US (occurrence: US)
  Receive Date: 20151009
  Receipt Date: 20151009
  Transmission Date: 20160304
  Serious: No
  Sender: FDA-Public Use
  Company Number: US-BAYER-2015-440362

PATIENT
  Age: 91 Year
  Sex: Male
  Weight: 52.15 kg

DRUGS (1)
  1. MIRALAX [Suspect]
     Active Substance: POLYETHYLENE GLYCOL 3350
     Indication: CONSTIPATION
     Dosage: 1 DF, EVERY OTHER DAY OR EVERY THIRD DAY
     Route: 048

REACTIONS (1)
  - Product use issue [None]
